FAERS Safety Report 6652514-1 (Version None)
Quarter: 2010Q1

REPORT INFORMATION
  Report Type: 
  Country: None (occurrence: None)
  Receive Date: 20100325
  Receipt Date: 20100325
  Transmission Date: 20100710
  Serious: Yes (Hospitalization)
  Sender: FDA-Public Use
  Company Number: None

PATIENT
  Age: 79 Year
  Sex: Male

DRUGS (2)
  1. AMOXICILLIN AND CLAVULANATE POTASSIUM [Suspect]
     Indication: UPPER RESPIRATORY TRACT INFECTION
     Dosage: 1 TAB BID PO
     Route: 048
     Dates: start: 20090227, end: 20090301
  2. BENZONATATE [Suspect]
     Indication: UPPER RESPIRATORY TRACT INFECTION
     Dosage: 100 MG TID PO
     Route: 048
     Dates: start: 20090227, end: 20090301

REACTIONS (2)
  - ANGIOEDEMA [None]
  - LOCAL SWELLING [None]
